FAERS Safety Report 25400025 (Version 1)
Quarter: 2025Q2

REPORT INFORMATION
  Report Type: Spontaneous
  Country: IT (occurrence: IT)
  Receive Date: 20250605
  Receipt Date: 20250605
  Transmission Date: 20250716
  Serious: Yes (Other)
  Sender: TEVA
  Company Number: None

PATIENT
  Age: 77 Year
  Sex: Female

DRUGS (2)
  1. PACLITAXEL [Suspect]
     Active Substance: PACLITAXEL
     Indication: Breast cancer
     Route: 042
     Dates: start: 202502
  2. BEVACIZUMAB [Concomitant]
     Active Substance: BEVACIZUMAB
     Indication: Breast cancer
     Route: 065
     Dates: start: 202502

REACTIONS (1)
  - Neurotoxicity [Not Recovered/Not Resolved]

NARRATIVE: CASE EVENT DATE: 20250501
